FAERS Safety Report 21301868 (Version 1)
Quarter: 2022Q3

REPORT INFORMATION
  Report Type: Spontaneous
  Country: JP (occurrence: JP)
  Receive Date: 20220907
  Receipt Date: 20220907
  Transmission Date: 20221026
  Serious: No
  Sender: FDA-Public Use
  Company Number: JP-PFIZER INC-PV202200046014

PATIENT
  Age: 75 Year
  Sex: Female
  Weight: 59 kg

DRUGS (3)
  1. PAXLOVID [Suspect]
     Active Substance: NIRMATRELVIR\RITONAVIR
     Indication: COVID-19 treatment
     Dosage: [PF-07321332 300 MG]/[RITONAVIR 100 MG]; 2X/DAY
     Route: 048
     Dates: start: 20220813, end: 20220815
  2. SUTENT [Concomitant]
     Active Substance: SUNITINIB MALATE
     Indication: Gastrointestinal stromal tumour
     Dosage: 2 CAPSULES AFTER BREAKFAST (WAS BEING TEMPORARILY WITHDRAWN)
     Route: 048
  3. AMLODIPINE BESYLATE\CANDESARTAN CILEXETIL [Concomitant]
     Active Substance: AMLODIPINE BESYLATE\CANDESARTAN CILEXETIL
     Indication: Hypertension
     Dosage: 1 DF AFTER BREAKFAST
     Route: 048

REACTIONS (3)
  - Off label use [Unknown]
  - Product prescribing error [Unknown]
  - Dizziness [Recovering/Resolving]

NARRATIVE: CASE EVENT DATE: 20220813
